FAERS Safety Report 4375461-7 (Version None)
Quarter: 2004Q2

REPORT INFORMATION
  Report Type: 
  Country: None (occurrence: None)
  Receive Date: 20040607
  Receipt Date: 20040526
  Transmission Date: 20050107
  Serious: Yes (Death)
  Sender: FDA-Public Use
  Company Number: USA-2004-0015356

PATIENT
  Age: 48 Year
  Sex: Female
  Weight: 58 kg

DRUGS (3)
  1. OXYCODONE HCL [Suspect]
  2. HYDROCODONE (HYDROCODONE) [Suspect]
  3. COCAINE (COCAINE) [Suspect]

REACTIONS (7)
  - ACCIDENTAL OVERDOSE [None]
  - ARTERIOSCLEROSIS [None]
  - CHEST PAIN [None]
  - CHEST WALL PAIN [None]
  - DRUG TOXICITY [None]
  - FALL [None]
  - MULTIPLE DRUG OVERDOSE [None]
